FAERS Safety Report 21737795 (Version 1)
Quarter: 2022Q4

REPORT INFORMATION
  Report Type: Spontaneous
  Country: US (occurrence: US)
  Receive Date: 20221216
  Receipt Date: 20221216
  Transmission Date: 20230113
  Serious: No
  Sender: FDA-Public Use
  Company Number: US-ORGANON-O2212USA000605

PATIENT
  Sex: Female

DRUGS (1)
  1. REMERON [Suspect]
     Active Substance: MIRTAZAPINE
     Indication: Anorexia nervosa
     Dosage: 7.5 MILLIGRAM
     Route: 048

REACTIONS (3)
  - Product use in unapproved indication [Unknown]
  - Prescribed underdose [Unknown]
  - Product prescribing issue [Unknown]
